FAERS Safety Report 21305962 (Version 1)
Quarter: 2022Q3

REPORT INFORMATION
  Report Type: Report from Study
  Country: AR (occurrence: AR)
  Receive Date: 20220908
  Receipt Date: 20220908
  Transmission Date: 20221027
  Serious: Yes (Other)
  Sender: FDA-Public Use
  Company Number: AR-NOVARTISPH-NVSC2021AR157161

PATIENT
  Age: 80 Year
  Sex: Male

DRUGS (1)
  1. COSENTYX [Suspect]
     Active Substance: SECUKINUMAB
     Indication: Psoriasis
     Dosage: 300 MG, QMO
     Route: 058
     Dates: start: 20160420

REACTIONS (5)
  - Cerebrovascular accident [Unknown]
  - Syncope [Unknown]
  - Arrhythmia [Unknown]
  - Dizziness [Unknown]
  - Memory impairment [Unknown]

NARRATIVE: CASE EVENT DATE: 20220801
